FAERS Safety Report 5811242-2 (Version None)
Quarter: 2008Q3

REPORT INFORMATION
  Report Type: 
  Country: None (occurrence: None)
  Receive Date: 20080716
  Receipt Date: 20080707
  Transmission Date: 20090109
  Serious: Yes (Other)
  Sender: FDA-Public Use
  Company Number: US-ROCHE-565038

PATIENT
  Sex: Female
  Weight: 58.5 kg

DRUGS (2)
  1. PEG-INTERFERON A-2A (RO 25-8310) [Suspect]
     Dosage: FROM A PRE-FILLED SYRINGE (PFS)
     Route: 065
     Dates: start: 20080304, end: 20080506
  2. RIBAVIRIN [Suspect]
     Route: 065
     Dates: start: 20080304, end: 20080506

REACTIONS (3)
  - ANAEMIA [None]
  - CAROTID ARTERY STENOSIS [None]
  - PAIN [None]
